FAERS Safety Report 7818645-5 (Version None)
Quarter: 2011Q4

REPORT INFORMATION
  Report Type: 
  Country: None (occurrence: None)
  Receive Date: 20111018
  Receipt Date: 20111003
  Transmission Date: 20120403
  Serious: Yes (Hospitalization)
  Sender: FDA-Public Use
  Company Number: ES-ELI_LILLY_AND_COMPANY-ES201110000423

PATIENT
  Sex: Male
  Weight: 55.2 kg

DRUGS (4)
  1. OTHER PHARMA COMPANY INV DRUG [Suspect]
     Indication: NON-SMALL CELL LUNG CANCER
     Dosage: 1400 MG, ONCE EVERY 2 WEEKS
     Route: 042
     Dates: start: 20110809
  2. DEXKETOPROFEN [Concomitant]
  3. CISPLATIN [Suspect]
     Indication: NON-SMALL CELL LUNG CANCER
     Dosage: 120 MG, ONCE EVERY 2 WEEKS
     Route: 042
     Dates: start: 20110810
  4. PEMETREXED [Suspect]
     Indication: NON-SMALL CELL LUNG CANCER
     Dosage: 810 MG, ONCE EVERY 2 WEEKS
     Route: 042
     Dates: start: 20110810

REACTIONS (1)
  - HEPATITIS TOXIC [None]
